FAERS Safety Report 6719040-2 (Version None)
Quarter: 2010Q2

REPORT INFORMATION
  Report Type: 
  Country: None (occurrence: None)
  Receive Date: 20100511
  Receipt Date: 20100503
  Transmission Date: 20101027
  Serious: Yes (Other)
  Sender: FDA-Public Use
  Company Number: AU-ASTRAZENECA-2010SE19846

PATIENT
  Sex: Female

DRUGS (2)
  1. CRESTOR [Suspect]
     Route: 048
     Dates: start: 20100101, end: 20100401
  2. CRESTOR [Suspect]
     Route: 048
     Dates: start: 20100401

REACTIONS (1)
  - BLOOD INSULIN DECREASED [None]
